FAERS Safety Report 10378921 (Version 1)
Quarter: 2014Q3

REPORT INFORMATION
  Report Type: Spontaneous
  Country: US (occurrence: US)
  Receive Date: 20140812
  Receipt Date: 20140812
  Transmission Date: 20150326
  Serious: Yes (Other)
  Sender: FDA-Public Use
  Company Number: US-BAYER-2014-116648

PATIENT
  Age: 89 Year
  Sex: Female

DRUGS (3)
  1. WARFARIN [Concomitant]
     Active Substance: WARFARIN
  2. CIPRO [Suspect]
     Active Substance: CIPROFLOXACIN HYDROCHLORIDE
     Indication: URINARY TRACT INFECTION
     Dosage: 250 MG, UNK
  3. METOPROLOL [Concomitant]
     Active Substance: METOPROLOL

REACTIONS (4)
  - Hypertension [None]
  - Paraesthesia [None]
  - Pulse abnormal [None]
  - Asthenia [None]

NARRATIVE: CASE EVENT DATE: 20140801
